FAERS Safety Report 6429787-3 (Version None)
Quarter: 2009Q4

REPORT INFORMATION
  Report Type: 
  Country: None (occurrence: None)
  Receive Date: 20091106
  Receipt Date: 20091023
  Transmission Date: 20100525
  Serious: Yes (Other)
  Sender: FDA-Public Use
  Company Number: PHHY2009BR25793

PATIENT
  Sex: Male

DRUGS (3)
  1. GLEEVEC [Suspect]
     Indication: CHRONIC MYELOID LEUKAEMIA
     Dosage: 600 MG DAILY
     Route: 048
  2. ERYTHROPOIETIN HUMAN [Concomitant]
  3. LUCENTIS [Concomitant]

REACTIONS (4)
  - CATARACT OPERATION [None]
  - MACULAR DEGENERATION [None]
  - RETINAL OPERATION [None]
  - VISUAL IMPAIRMENT [None]
